FAERS Safety Report 9922491 (Version 2)
Quarter: 2015Q4

REPORT INFORMATION
  Report Type: Spontaneous
  Country: US (occurrence: US)
  Receive Date: 20140225
  Receipt Date: 20151106
  Transmission Date: 20160305
  Serious: Yes (Death, Hospitalization)
  Sender: FDA-Public Use
  Company Number: US-ASTRAZENECA-2014SE12734

PATIENT
  Age: 48 Year
  Sex: Male
  Weight: 86.2 kg

DRUGS (5)
  1. TAGAMET [Concomitant]
     Active Substance: CIMETIDINE
  2. CRESTOR [Suspect]
     Active Substance: ROSUVASTATIN CALCIUM
     Indication: BLOOD CHOLESTEROL INCREASED
     Route: 048
     Dates: start: 1988
  3. CRESTOR [Suspect]
     Active Substance: ROSUVASTATIN CALCIUM
     Indication: BLOOD CHOLESTEROL INCREASED
     Route: 048
     Dates: start: 200401, end: 201105
  4. DILANTIN [Concomitant]
     Active Substance: PHENYTOIN
  5. ALKA SELTZER [Concomitant]
     Active Substance: ANHYDROUS CITRIC ACID\ASPIRIN\SODIUM BICARBONATE

REACTIONS (8)
  - Myocardial infarction [Fatal]
  - Stress [Unknown]
  - Type 1 diabetes mellitus [Unknown]
  - Renal disorder [Unknown]
  - Cardiovascular disorder [Unknown]
  - Muscular weakness [Unknown]
  - Hypertension [Unknown]
  - Liver disorder [Unknown]

NARRATIVE: CASE EVENT DATE: 2000
